FAERS Safety Report 5190216-1 (Version None)
Quarter: 2006Q4

REPORT INFORMATION
  Report Type: 
  Country: None (occurrence: None)
  Receive Date: 20061222
  Receipt Date: 20060921
  Transmission Date: 20070319
  Serious: No
  Sender: FDA-Public Use
  Company Number: US-AMGEN-KDL194277

PATIENT
  Sex: Male
  Weight: 67.6 kg

DRUGS (9)
  1. ARANESP [Suspect]
     Indication: RENAL FAILURE CHRONIC
     Dates: start: 20030903
  2. ZIAC [Concomitant]
  3. HYTRIN [Concomitant]
     Dates: start: 20031015
  4. CALCITRIOL [Concomitant]
     Dates: start: 20050822
  5. FOLIC ACID [Concomitant]
     Dates: start: 20040107
  6. COZAAR [Concomitant]
     Dates: start: 20031015
  7. NORVASC [Concomitant]
     Dates: start: 20031126
  8. BICITRA [Concomitant]
  9. BUMETANIDE [Concomitant]
     Dates: start: 20050323, end: 20060823

REACTIONS (1)
  - DRUG INEFFECTIVE [None]
